FAERS Safety Report 5080204-8 (Version None)
Quarter: 2006Q3

REPORT INFORMATION
  Report Type: 
  Country: None (occurrence: None)
  Receive Date: 20060815
  Receipt Date: 20060803
  Transmission Date: 20061208
  Serious: Yes (Death)
  Sender: FDA-Public Use
  Company Number: JP-JNJFOC-20060801421

PATIENT
  Sex: Female

DRUGS (4)
  1. RISPERDAL [Suspect]
     Route: 048
  2. RISPERDAL [Suspect]
     Indication: SCHIZOPHRENIA, CATATONIC TYPE
     Route: 048
  3. SILECE [Suspect]
     Indication: SCHIZOPHRENIA
     Route: 048
  4. OLANZAPINE [Suspect]
     Indication: DRUG USE FOR UNKNOWN INDICATION

REACTIONS (1)
  - PNEUMONIA [None]
